FAERS Safety Report 9063631 (Version 1)
Quarter: 2013Q1

REPORT INFORMATION
  Report Type: Report from Study
  Country: US (occurrence: US)
  Receive Date: 20130129
  Receipt Date: 20130129
  Transmission Date: 20140127
  Serious: No
  Sender: FDA-Public Use
  Company Number: US-ABBOTT-12P-163-0945147-00

PATIENT
  Age: 71 Year
  Sex: Male

DRUGS (9)
  1. HUMIRA 40 MG/0.8 ML PEN [Suspect]
     Indication: PSORIASIS
     Dates: start: 201104
  2. BACLOFEN [Concomitant]
     Indication: MUSCLE DISORDER
  3. PROBENECID [Concomitant]
     Indication: GOUT
  4. ALLOPURINOL [Concomitant]
     Indication: GOUT
  5. VASOTEC [Concomitant]
     Indication: BLOOD PRESSURE
  6. LIPITOR [Concomitant]
     Indication: CARDIAC DISORDER
  7. CARDIZEM [Concomitant]
     Indication: ATRIAL FIBRILLATION
  8. COUMADIN [Concomitant]
     Indication: ATRIAL FIBRILLATION
  9. COUMADIN [Concomitant]
     Indication: THROMBOSIS

REACTIONS (2)
  - Pollakiuria [Not Recovered/Not Resolved]
  - Fluid intake reduced [Not Recovered/Not Resolved]
